FAERS Safety Report 5151736-9 (Version None)
Quarter: 2006Q4

REPORT INFORMATION
  Report Type: 
  Country: None (occurrence: None)
  Receive Date: 20061107
  Receipt Date: 20061018
  Transmission Date: 20070319
  Serious: Yes (Hospitalization, Congenital Anomaly, Other)
  Sender: FDA-Public Use
  Company Number: FR200610002989

PATIENT
  Age: 1 Day
  Sex: Female

DRUGS (8)
  1. PROZAC [Suspect]
     Dosage: TRANSPLACENTAL
     Route: 064
  2. XANAX [Concomitant]
  3. ANAFRANIL /GFR/ (CLOMIPRAMINE HYDROCHLORIDE) [Concomitant]
  4. LEXOMIL (BROMAZEPAM) [Concomitant]
  5. THERALENE (ALIMEMAZINE TARTRATE) [Concomitant]
  6. THERALENE (ALIMEMAZINE TARTRATE) [Concomitant]
  7. AMITRIPTYLINE HYDROCHLORIDE [Concomitant]
  8. MEPRONIZINE (ACEPROMETAZINE, MEPROBAMATE) [Concomitant]

REACTIONS (7)
  - CONGENITAL TRACHEOMALACIA [None]
  - DRUG EXPOSURE DURING PREGNANCY [None]
  - DRUG WITHDRAWAL SYNDROME NEONATAL [None]
  - HEART DISEASE CONGENITAL [None]
  - HYPERTONIA NEONATAL [None]
  - PREMATURE BABY [None]
  - PREMATURE LABOUR [None]
